APPROVED DRUG PRODUCT: NORETHINDRONE ACETATE AND ETHINYL ESTRADIOL
Active Ingredient: ETHINYL ESTRADIOL; NORETHINDRONE ACETATE
Strength: 0.005MG;1MG
Dosage Form/Route: TABLET;ORAL
Application: A207259 | Product #001
Applicant: XIROMED LLC
Approved: Dec 27, 2016 | RLD: No | RS: No | Type: DISCN